FAERS Safety Report 18385579 (Version 2)
Quarter: 2020Q4

REPORT INFORMATION
  Report Type: Report from Study
  Country: JP (occurrence: JP)
  Receive Date: 20201015
  Receipt Date: 20201022
  Transmission Date: 20210114
  Serious: Yes (Death, Life-Threatening, Hospitalization, Other)
  Sender: FDA-Public Use
  Company Number: JP-AMGEN-JPNCT2020164058

PATIENT
  Sex: Female

DRUGS (27)
  1. LATANOPROST. [Concomitant]
     Active Substance: LATANOPROST
     Indication: GLAUCOMA
     Dosage: UNK
     Route: 047
  2. MAGMITT [Concomitant]
     Active Substance: MAGNESIUM OXIDE
     Dosage: 1980 MG
     Route: 048
     Dates: start: 20190604, end: 20191126
  3. MEROPEN [MEROPENEM] [Concomitant]
     Active Substance: MEROPENEM
     Dosage: 1 G
     Route: 065
     Dates: start: 20191009, end: 20191111
  4. FUROSEMIDE. [Concomitant]
     Active Substance: FUROSEMIDE
     Indication: CARDIAC FAILURE CONGESTIVE
     Dosage: 40 MG
     Route: 048
     Dates: end: 20191007
  5. RISPERIDONE. [Concomitant]
     Active Substance: RISPERIDONE
     Indication: INSOMNIA
     Dosage: 1 MG
     Route: 048
     Dates: start: 20190420, end: 20191126
  6. TRAZENTA [Concomitant]
     Active Substance: LINAGLIPTIN
     Indication: DIABETES MELLITUS
     Dosage: 5 MG
     Route: 048
     Dates: start: 20190820, end: 20191007
  7. ROZEREM [Concomitant]
     Active Substance: RAMELTEON
     Indication: INSOMNIA
     Dosage: 8 MG
     Route: 048
     Dates: start: 20191018, end: 20191126
  8. TEICOPLANIN [Concomitant]
     Active Substance: TEICOPLANIN
     Dosage: 400 MG, QOD
     Route: 065
     Dates: start: 20191027, end: 20191113
  9. MIKELAN LA [Concomitant]
     Active Substance: CARTEOLOL HYDROCHLORIDE
     Indication: GLAUCOMA
     Dosage: UNK
     Route: 047
  10. AMITIZA [Concomitant]
     Active Substance: LUBIPROSTONE
     Dosage: 24 UG
     Route: 048
     Dates: start: 20191018, end: 20191031
  11. HUMULIN R [Concomitant]
     Active Substance: INSULIN HUMAN
     Dosage: UNK
     Route: 041
     Dates: start: 20191125, end: 20191127
  12. CICLOSPORIN [Concomitant]
     Active Substance: CYCLOSPORINE
     Indication: MYELODYSPLASTIC SYNDROME
     Dosage: 50 MG
     Route: 048
     Dates: start: 201810, end: 20191007
  13. FEBURIC [Concomitant]
     Active Substance: FEBUXOSTAT
     Dosage: 20 MG
     Route: 048
     Dates: end: 20191007
  14. VANCOMYCIN [VANCOMYCIN HYDROCHLORIDE] [Concomitant]
     Active Substance: VANCOMYCIN HYDROCHLORIDE
     Dosage: 500-750 MG
     Route: 065
     Dates: start: 20191011, end: 20191024
  15. FUNGUARD [Concomitant]
     Active Substance: MICAFUNGIN SODIUM
     Dosage: 100 MG
     Route: 065
     Dates: start: 20191017, end: 20191126
  16. MENATETRENONE [Concomitant]
     Active Substance: MENATETRENONE
     Indication: MYELODYSPLASTIC SYNDROME
     Dosage: 30 MG
     Route: 048
     Dates: start: 201810, end: 20191007
  17. NITRODERM [Concomitant]
     Active Substance: NITROGLYCERIN
     Indication: CARDIAC FAILURE CONGESTIVE
     Dosage: 25 MG
     Dates: end: 20191126
  18. SPIRONOLACTONE. [Concomitant]
     Active Substance: SPIRONOLACTONE
     Indication: CARDIAC FAILURE CONGESTIVE
     Dosage: 25 MG
     Route: 048
     Dates: end: 20191007
  19. LULLAN [Concomitant]
     Active Substance: PEROSPIRONE HYDROCHLORIDE
     Indication: INSOMNIA
     Dosage: 8 MG
     Route: 048
     Dates: start: 20190417, end: 20190424
  20. KARY UNI [Concomitant]
     Active Substance: PIRENOXINE
     Indication: CATARACT
     Dosage: UNK
     Route: 047
  21. LEVOFLOXACIN. [Concomitant]
     Active Substance: LEVOFLOXACIN
     Dosage: 500 MG
     Route: 065
     Dates: start: 20191120, end: 20191125
  22. DARBEPOETIN ALFA [Suspect]
     Active Substance: DARBEPOETIN ALFA
     Indication: MYELODYSPLASTIC SYNDROME
     Dosage: 240 MICROGRAM, QWK
     Route: 058
     Dates: start: 201810, end: 20190604
  23. DARBEPOETIN ALFA [Suspect]
     Active Substance: DARBEPOETIN ALFA
     Dosage: 240 MICROGRAM, Q2WK
     Route: 058
     Dates: start: 20190611, end: 20190625
  24. DARBEPOETIN ALFA [Suspect]
     Active Substance: DARBEPOETIN ALFA
     Dosage: 240 MICROGRAM
     Route: 058
     Dates: start: 20190903, end: 20190917
  25. PRIMOBOLAN [METENOLONE ACETATE] [Concomitant]
     Active Substance: METHENOLONE ACETATE
     Indication: MYELODYSPLASTIC SYNDROME
     Dosage: UNK
     Route: 048
     Dates: start: 201810, end: 20191007
  26. BISONO [Concomitant]
     Active Substance: BISOPROLOL
     Indication: CARDIAC FAILURE CONGESTIVE
     Dosage: 4 MG
     Dates: end: 20191126
  27. AZITHROMYCIN ANHYDROUS. [Concomitant]
     Active Substance: AZITHROMYCIN ANHYDROUS
     Dosage: 500 MG
     Route: 048
     Dates: start: 20191012, end: 20191014

REACTIONS (6)
  - Hyperglycaemia [Fatal]
  - Infection [Fatal]
  - Diabetes mellitus [Recovered/Resolved]
  - Pyrexia [Fatal]
  - Constipation [Not Recovered/Not Resolved]
  - Pelvic inflammatory disease [Unknown]

NARRATIVE: CASE EVENT DATE: 20190604
